FAERS Safety Report 19082766 (Version 1)
Quarter: 2021Q2

REPORT INFORMATION
  Report Type: Spontaneous
  Country: US (occurrence: US)
  Receive Date: 20210401
  Receipt Date: 20210401
  Transmission Date: 20210717
  Serious: No
  Sender: FDA-Public Use
  Company Number: None

PATIENT
  Age: 54 Year
  Sex: Male
  Weight: 87.66 kg

DRUGS (15)
  1. GABAPENTIN. [Concomitant]
     Active Substance: GABAPENTIN
  2. VITAMIN D3 [Concomitant]
     Active Substance: CHOLECALCIFEROL
  3. INLYTA [Suspect]
     Active Substance: AXITINIB
     Indication: RENAL CANCER
     Route: 048
     Dates: start: 20210105
  4. EZETIMIBE. [Concomitant]
     Active Substance: EZETIMIBE
  5. SIMVASTATIN. [Concomitant]
     Active Substance: SIMVASTATIN
  6. TRAZODONE [Concomitant]
     Active Substance: TRAZODONE HYDROCHLORIDE
  7. VYTORIN [Concomitant]
     Active Substance: EZETIMIBE\SIMVASTATIN
  8. CYCLOBENZAPRINE. [Concomitant]
     Active Substance: CYCLOBENZAPRINE
  9. NICOTINE POLACRILEX [Concomitant]
     Active Substance: NICOTINE
  10. OXYCODONE [Concomitant]
     Active Substance: OXYCODONE
  11. REPATHA [Concomitant]
     Active Substance: EVOLOCUMAB
  12. ACTOS [Concomitant]
     Active Substance: PIOGLITAZONE HYDROCHLORIDE
  13. BUPROPRION [Concomitant]
     Active Substance: BUPROPION
  14. GLIMEPIRIDE. [Concomitant]
     Active Substance: GLIMEPIRIDE
  15. NICOTINE TRANSDERMAL SYSTEM [Concomitant]
     Active Substance: NICOTINE

REACTIONS (1)
  - Rash [None]

NARRATIVE: CASE EVENT DATE: 20210401
